FAERS Safety Report 17837463 (Version 1)
Quarter: 2020Q2

REPORT INFORMATION
  Report Type: Spontaneous
  Country: SA (occurrence: SA)
  Receive Date: 20200528
  Receipt Date: 20200528
  Transmission Date: 20200714
  Serious: Yes (Death, Hospitalization)
  Sender: FDA-Public Use
  Company Number: SA-SEATTLE GENETICS-2020SGN02331

PATIENT

DRUGS (1)
  1. ADCETRIS [Suspect]
     Active Substance: BRENTUXIMAB VEDOTIN
     Indication: HODGKIN^S DISEASE
     Dosage: 1.8 MG/KG, Q3WEEKS
     Route: 042

REACTIONS (4)
  - Acute lung injury [Unknown]
  - Pulmonary toxicity [Unknown]
  - Pulmonary haemorrhage [Unknown]
  - Respiratory failure [Fatal]
